FAERS Safety Report 6308495-3 (Version None)
Quarter: 2009Q3

REPORT INFORMATION
  Report Type: 
  Country: None (occurrence: None)
  Receive Date: 20090813
  Receipt Date: 20090810
  Transmission Date: 20100115
  Serious: No
  Sender: FDA-Public Use
  Company Number: US-B.I. PHARMACEUTICALS,INC./RIDGEFIELD-2009-BP-09480BP

PATIENT
  Sex: Male

DRUGS (7)
  1. SPIRIVA [Suspect]
     Indication: EMPHYSEMA
     Dosage: 18 MCG
     Route: 055
     Dates: start: 20090301
  2. ASPIRIN [Concomitant]
     Indication: CARDIAC DISORDER
     Dosage: 81 MG
  3. LISINOPRIL [Concomitant]
     Indication: HYPERTENSION
     Dosage: 110 MG
  4. OMEPRAZOLE [Concomitant]
     Indication: GASTROOESOPHAGEAL REFLUX DISEASE
  5. SUPER B COMPLEX [Concomitant]
     Indication: ROUTINE HEALTH MAINTENANCE
  6. VITAMIN D [Concomitant]
     Indication: ROUTINE HEALTH MAINTENANCE
  7. UNKNOWN MEDICATION FOR CHOLESTEROL [Concomitant]
     Indication: BLOOD CHOLESTEROL INCREASED

REACTIONS (2)
  - ACTIVITIES OF DAILY LIVING IMPAIRED [None]
  - DYSPNOEA EXERTIONAL [None]
